FAERS Safety Report 14534847 (Version 4)
Quarter: 2021Q1

REPORT INFORMATION
  Report Type: Report from Study
  Country: JP (occurrence: JP)
  Receive Date: 20180215
  Receipt Date: 20210226
  Transmission Date: 20210419
  Serious: Yes (Death, Hospitalization)
  Sender: FDA-Public Use
  Company Number: JP-EISAI MEDICAL RESEARCH-EC-2018-036148

PATIENT
  Age: 51 Year
  Sex: Male
  Weight: 48 kg

DRUGS (1)
  1. LENVIMA [Suspect]
     Active Substance: LENVATINIB
     Indication: FOLLICULAR THYROID CANCER
     Route: 048
     Dates: start: 20170502, end: 20180117

REACTIONS (3)
  - Abscess neck [Fatal]
  - Tracheal stenosis [Fatal]
  - Fistula [Fatal]

NARRATIVE: CASE EVENT DATE: 20180118
